FAERS Safety Report 13586193 (Version 1)
Quarter: 2017Q2

REPORT INFORMATION
  Report Type: Spontaneous
  Country: US (occurrence: US)
  Receive Date: 20170526
  Receipt Date: 20170526
  Transmission Date: 20170830
  Serious: Yes (Other)
  Sender: FDA-Public Use
  Company Number: US-MYLANLABS-2017M1029286

PATIENT

DRUGS (1)
  1. CELECOXIB. [Suspect]
     Active Substance: CELECOXIB
     Indication: RHEUMATOID ARTHRITIS
     Dosage: 200 MG, QD
     Route: 048

REACTIONS (6)
  - Swelling [Unknown]
  - Pain [Unknown]
  - Pain in extremity [Unknown]
  - Drug ineffective [Unknown]
  - Gait disturbance [Unknown]
  - Joint swelling [Unknown]

NARRATIVE: CASE EVENT DATE: 20170420
